FAERS Safety Report 6119330-0 (Version None)
Quarter: 2009Q1

REPORT INFORMATION
  Report Type: 
  Country: None (occurrence: None)
  Receive Date: 20090316
  Receipt Date: 20090305
  Transmission Date: 20090719
  Serious: Yes (Hospitalization)
  Sender: FDA-Public Use
  Company Number: BE-AMGEN-US337424

PATIENT
  Age: 58 Year
  Sex: Female
  Weight: 54 kg

DRUGS (1)
  1. ENBREL [Suspect]
     Indication: RHEUMATOID ARTHRITIS
     Dates: start: 20020101, end: 20090116

REACTIONS (2)
  - EPIDERMOLYSIS [None]
  - SKIN NECROSIS [None]
